FAERS Safety Report 6245967-4 (Version None)
Quarter: 2009Q2

REPORT INFORMATION
  Report Type: 
  Country: None (occurrence: None)
  Receive Date: 20090626
  Receipt Date: 20081014
  Transmission Date: 20091009
  Serious: Yes (Other)
  Sender: FDA-Public Use
  Company Number: A0746324A

PATIENT
  Age: 55 Year
  Sex: Female
  Weight: 59.5 kg

DRUGS (6)
  1. IMITREX [Suspect]
     Indication: MIGRAINE
     Dosage: 100MG THREE TIMES PER WEEK
     Route: 048
     Dates: start: 19950101
  2. IMITREX [Suspect]
     Route: 058
     Dates: start: 19920101, end: 19950101
  3. VITAMIN B-12 [Concomitant]
  4. JUICE PLUS [Concomitant]
  5. FIORICET [Concomitant]
  6. ELAVIL [Concomitant]
     Route: 048

REACTIONS (4)
  - HEPATIC ENZYME INCREASED [None]
  - HYPOAESTHESIA [None]
  - PARAESTHESIA [None]
  - WEIGHT INCREASED [None]
